FAERS Safety Report 8082532-0 (Version None)
Quarter: 2012Q1

REPORT INFORMATION
  Report Type: 
  Country: None (occurrence: None)
  Receive Date: 20120127
  Receipt Date: 20110219
  Transmission Date: 20120608
  Serious: No
  Sender: FDA-Public Use
  Company Number: US-ABBOTT-11P-163-0706749-00

PATIENT
  Sex: Female
  Weight: 58.112 kg

DRUGS (4)
  1. HUMIRA [Suspect]
     Indication: CROHN'S DISEASE
     Dosage: LOADING DOSE
     Dates: start: 20110204
  2. NEXIUM [Concomitant]
     Indication: GASTRIC ULCER
  3. APRISO [Concomitant]
     Indication: CROHN'S DISEASE
  4. LEVOTHYROXINE SODIUM [Concomitant]
     Indication: HYPOTHYROIDISM

REACTIONS (7)
  - CROHN'S DISEASE [None]
  - DIARRHOEA [None]
  - INJECTION SITE HAEMATOMA [None]
  - INJECTION SITE HAEMORRHAGE [None]
  - ABDOMINAL PAIN [None]
  - INJECTION SITE NODULE [None]
  - INJECTION SITE PAIN [None]
